FAERS Safety Report 8709433 (Version 3)
Quarter: 2012Q4

REPORT INFORMATION
  Report Type: Report from Study
  Country: BR (occurrence: BR)
  Receive Date: 20120806
  Receipt Date: 20120903
  Transmission Date: 20130627
  Serious: Yes (Life-Threatening, Hospitalization, Other)
  Sender: FDA-Public Use
  Company Number: BR-BRISTOL-MYERS SQUIBB COMPANY-16833196

PATIENT
  Age: 58 Year
  Sex: Male
  Weight: 95 kg

DRUGS (2)
  1. STOCRIN CAPS [Suspect]
     Indication: HIV INFECTION
     Route: 048
     Dates: start: 20071114
  2. COMBIVIR [Suspect]
     Indication: HIV INFECTION
     Route: 048
     Dates: start: 20071114

REACTIONS (6)
  - Fall [Recovering/Resolving]
  - Upper limb fracture [Recovering/Resolving]
  - Type 2 diabetes mellitus [Unknown]
  - Atrial fibrillation [Unknown]
  - Dyslipidaemia [Unknown]
  - Agitation [Unknown]
